FAERS Safety Report 11692722 (Version 1)
Quarter: 2015Q4

REPORT INFORMATION
  Report Type: Spontaneous
  Country: US (occurrence: US)
  Receive Date: 20151103
  Receipt Date: 20151103
  Transmission Date: 20160304
  Serious: No
  Sender: FDA-Public Use
  Company Number: US-ENDO PHARMACEUTICALS INC.-VANT20150004

PATIENT
  Sex: Male

DRUGS (2)
  1. VANTAS [Suspect]
     Active Substance: HISTRELIN ACETATE
     Route: 058
     Dates: start: 2011, end: 2012
  2. VANTAS [Suspect]
     Active Substance: HISTRELIN ACETATE
     Indication: PROSTATE CANCER
     Route: 058
     Dates: start: 2012

REACTIONS (3)
  - Incorrect drug administration duration [Not Recovered/Not Resolved]
  - Feeling jittery [Not Recovered/Not Resolved]
  - Feeling of body temperature change [Not Recovered/Not Resolved]

NARRATIVE: CASE EVENT DATE: 2013
